FAERS Safety Report 7418618-0 (Version None)
Quarter: 2011Q1

REPORT INFORMATION
  Report Type: 
  Country: None (occurrence: None)
  Receive Date: 20110302
  Receipt Date: 20101105
  Transmission Date: 20110831
  Serious: No
  Sender: FDA-Public Use
  Company Number: 020234

PATIENT
  Sex: Female
  Weight: 65.8 kg

DRUGS (11)
  1. VITAMIN D [Concomitant]
  2. PREDNISONE [Concomitant]
  3. FERGON [Concomitant]
  4. TEGRETOL [Concomitant]
  5. AMITRIPTYLYINE [Concomitant]
  6. VITAMIN B-12 [Concomitant]
  7. LUNESTA [Concomitant]
  8. MULTI-VITAMINS [Concomitant]
  9. HYDROCODONE BITARTRATE [Concomitant]
  10. CIMZIA [Suspect]
     Indication: CROHN'S DISEASE
     Dosage: 400 MG 1X/4 WEEKS SUBCUTANEOUS
     Route: 058
     Dates: start: 20100222
  11. TRANXENE [Concomitant]

REACTIONS (2)
  - BLOOD PRESSURE INCREASED [None]
  - ABDOMINAL PAIN [None]
